FAERS Safety Report 8962835 (Version 1)
Quarter: 2012Q4

REPORT INFORMATION
  Report Type: 
  Country: US (occurrence: US)
  Receive Date: 20121214
  Receipt Date: 20121214
  Transmission Date: 20130627
  Serious: Yes (Other)
  Sender: FDA-Public Use
  Company Number: US-PFIZER INC-2012312713

PATIENT
  Age: 61 Year
  Sex: Male
  Weight: 95.24 kg

DRUGS (3)
  1. VIAGRA [Suspect]
     Indication: ERECTILE DYSFUNCTION
     Dosage: 50 mg, 2x/week
  2. VIAGRA [Suspect]
     Dosage: 100 mg, UNK
  3. CELEBREX [Concomitant]
     Indication: ARTHRITIS
     Dosage: 200 mg, daily

REACTIONS (4)
  - Arthritis infective [Recovered/Resolved]
  - Infection [Recovered/Resolved]
  - Expired drug administered [Unknown]
  - Drug ineffective [Unknown]
